FAERS Safety Report 14695743 (Version 2)
Quarter: 2020Q1

REPORT INFORMATION
  Report Type: Spontaneous
  Country: US (occurrence: US)
  Receive Date: 20180329
  Receipt Date: 20200106
  Transmission Date: 20200409
  Serious: Yes (Other)
  Sender: FDA-Public Use
  Company Number: US-TEVA-2018-US-874858

PATIENT
  Age: 58 Year
  Sex: Female

DRUGS (1)
  1. ANASTROZOLE. [Suspect]
     Active Substance: ANASTROZOLE
     Indication: BREAST CANCER
     Route: 065

REACTIONS (3)
  - Chronic hepatitis [Recovered/Resolved]
  - Drug-induced liver injury [Recovered/Resolved]
  - Portal fibrosis [Recovered/Resolved]
